FAERS Safety Report 16924653 (Version 1)
Quarter: 2019Q4

REPORT INFORMATION
  Report Type: Spontaneous
  Country: US (occurrence: US)
  Receive Date: 20191013
  Receipt Date: 20191013
  Transmission Date: 20200122
  Serious: Yes (Disabling, Other)
  Sender: FDA-Public Use
  Company Number: None

PATIENT
  Age: 59 Year
  Sex: Female
  Weight: 69.75 kg

DRUGS (4)
  1. MASTISOL [DEVICE] [Suspect]
     Active Substance: DEVICE
     Indication: SUTURE INSERTION
     Route: 061
  2. VITAMIN D [Concomitant]
     Active Substance: VITAMIN D NOS
  3. VITAMIN C [Concomitant]
     Active Substance: ASCORBIC ACID
  4. BENZOIN TINCTURE [Suspect]
     Active Substance: BENZOIN RESIN

REACTIONS (6)
  - Application site vesicles [None]
  - Application site scar [None]
  - Wound secretion [None]
  - Product formulation issue [None]
  - Application site pain [None]
  - Impaired healing [None]

NARRATIVE: CASE EVENT DATE: 20191011
